FAERS Safety Report 4479732-5 (Version None)
Quarter: 2004Q3

REPORT INFORMATION
  Report Type: 
  Country: None (occurrence: None)
  Receive Date: 20040923
  Receipt Date: 20040727
  Transmission Date: 20050211
  Serious: No
  Sender: FDA-Public Use
  Company Number: USA040360869

PATIENT
  Age: 52 Year
  Sex: Female
  Weight: 53 kg

DRUGS (9)
  1. FORTEO [Suspect]
     Indication: OSTEOPOROSIS
     Dosage: 20 UG/1 DAY
     Dates: start: 20040227
  2. ASPIRIN [Concomitant]
  3. ZESTRIL [Concomitant]
  4. CLARINEX [Concomitant]
  5. FLONASE (FLUCITASONE PROPIONATE) [Concomitant]
  6. PREVACID [Concomitant]
  7. ROBINUL (GLUCOPYRRONIUM BROMIDE) [Concomitant]
  8. CALCIUM [Concomitant]
  9. MULTI-VITAMIN [Concomitant]

REACTIONS (8)
  - FEELING ABNORMAL [None]
  - INJECTION SITE ERYTHEMA [None]
  - INJECTION SITE HAEMORRHAGE [None]
  - INJECTION SITE MASS [None]
  - INJECTION SITE PAIN [None]
  - INJECTION SITE PRURITUS [None]
  - INJECTION SITE SWELLING [None]
  - INJECTION SITE WARMTH [None]
